FAERS Safety Report 7271732-5 (Version None)
Quarter: 2011Q1

REPORT INFORMATION
  Report Type: 
  Country: None (occurrence: None)
  Receive Date: 20110203
  Receipt Date: 20110128
  Transmission Date: 20110831
  Serious: No
  Sender: FDA-Public Use
  Company Number: DE-EISAI INC-E2090-01469-SPO-DE

PATIENT
  Sex: Female
  Weight: 13 kg

DRUGS (5)
  1. ZONEGRAN [Suspect]
     Indication: EPILEPSY
     Route: 048
     Dates: start: 20100908
  2. OMEPRAZOLE [Concomitant]
     Dosage: 20 MG
     Route: 048
  3. LAMOTRIGINE [Concomitant]
     Indication: EPILEPSY
     Dosage: 25 MG
     Route: 048
  4. TOPIRAMATE [Interacting]
     Indication: EPILEPSY
     Dosage: 50 MG
     Route: 048
  5. CLOBAZAM [Concomitant]
     Indication: EPILEPSY
     Dosage: 10 MG
     Route: 048

REACTIONS (2)
  - METABOLIC ACIDOSIS [None]
  - DRUG INTERACTION [None]
